FAERS Safety Report 26167327 (Version 1)
Quarter: 2025Q4

REPORT INFORMATION
  Report Type: Spontaneous
  Country: US (occurrence: US)
  Receive Date: 20251217
  Receipt Date: 20251217
  Transmission Date: 20260118
  Serious: No
  Sender: TEVA
  Company Number: US-TEVA-VS-3401416

PATIENT
  Sex: Male

DRUGS (1)
  1. AUSTEDO [Suspect]
     Active Substance: DEUTETRABENAZINE
     Indication: Product used for unknown indication
     Dosage: STARTED IN EARLY OCTOBER
     Route: 065
     Dates: start: 202510

REACTIONS (5)
  - Headache [Recovered/Resolved]
  - Asthenia [Unknown]
  - Diarrhoea [Unknown]
  - Poor quality sleep [Unknown]
  - Constipation [Unknown]

NARRATIVE: CASE EVENT DATE: 20251001
